FAERS Safety Report 4465378-1 (Version None)
Quarter: 2004Q3

REPORT INFORMATION
  Report Type: 
  Country: None (occurrence: None)
  Receive Date: 20040930
  Receipt Date: 20040921
  Transmission Date: 20050211
  Serious: Yes (Disabling)
  Sender: FDA-Public Use
  Company Number: BRO-007665

PATIENT
  Age: 67 Year
  Sex: Male

DRUGS (1)
  1. IOPAMIDOL [Suspect]
     Dosage: 100 ML IV; 50 SECS
     Route: 042
     Dates: start: 20040715, end: 20040715

REACTIONS (10)
  - ANAPHYLACTIC SHOCK [None]
  - CARDIAC ARREST [None]
  - COUGH [None]
  - DYSPNOEA [None]
  - EXPRESSIVE LANGUAGE DISORDER [None]
  - HYPOXIC ENCEPHALOPATHY [None]
  - LOSS OF CONSCIOUSNESS [None]
  - NAUSEA [None]
  - RESPIRATORY ARREST [None]
  - VOMITING [None]
